FAERS Safety Report 12647770 (Version 1)
Quarter: 2016Q3

REPORT INFORMATION
  Report Type: Spontaneous
  Country: US (occurrence: US)
  Receive Date: 20160812
  Receipt Date: 20160812
  Transmission Date: 20161109
  Serious: Yes (Hospitalization)
  Sender: FDA-Public Use
  Company Number: US-PFIZER INC-2016378411

PATIENT
  Age: 67 Year
  Sex: Male

DRUGS (2)
  1. SUTENT [Suspect]
     Active Substance: SUNITINIB MALATE
     Dosage: 50 MG, CYCLIC (DAILY FOR 28 DAYS AND 14 DAYS OFF)
     Route: 048
     Dates: start: 20160624, end: 20160801
  2. SUTENT [Suspect]
     Active Substance: SUNITINIB MALATE
     Dosage: UNK  (ONLY TOOK 14 PILLS FROM LAST FILL)

REACTIONS (2)
  - Renal disorder [Unknown]
  - Pain [Unknown]
